FAERS Safety Report 21821090 (Version 1)
Quarter: 2023Q1

REPORT INFORMATION
  Report Type: Report from Study
  Country: FR (occurrence: FR)
  Receive Date: 20230105
  Receipt Date: 20230105
  Transmission Date: 20230418
  Serious: Yes (Other)
  Sender: FDA-Public Use
  Company Number: FR-SHIRE-FR201821345

PATIENT

DRUGS (13)
  1. PEGASPARGASE [Suspect]
     Active Substance: PEGASPARGASE
     Indication: Acute lymphocytic leukaemia
     Dosage: 2400 MG, 1X/DAY:QD
     Route: 042
     Dates: start: 20180525
  2. PREDNISONE [Suspect]
     Active Substance: PREDNISONE
     Indication: Acute lymphocytic leukaemia
     Dosage: 120 MG, 1X/DAY:QD
     Route: 048
     Dates: start: 20180514
  3. VINCRISTINE [Suspect]
     Active Substance: VINCRISTINE
     Indication: Acute lymphocytic leukaemia
     Dosage: 2 MG, 1X/DAY:QD
     Route: 042
     Dates: start: 20180521
  4. DAUNORUBICIN [Suspect]
     Active Substance: DAUNORUBICIN
     Indication: Acute lymphocytic leukaemia
     Dosage: 57 MG, 1X/DAY:QD
     Route: 042
     Dates: start: 20180521
  5. METHOTREXATE [Suspect]
     Active Substance: METHOTREXATE
     Indication: Acute lymphocytic leukaemia
     Dosage: 15 MG, 1X/DAY:QD
     Route: 037
     Dates: start: 20180517
  6. CYTARABINE [Suspect]
     Active Substance: CYTARABINE
     Indication: Acute lymphocytic leukaemia
     Dosage: 30 MG, 1X/DAY:QD
     Route: 037
     Dates: start: 20180522
  7. HYDROCORTISONE [Suspect]
     Active Substance: HYDROCORTISONE
     Indication: Acute lymphocytic leukaemia
     Dosage: 15 MG, 1X/DAY:QD
     Route: 037
     Dates: start: 20180522
  8. SULFAMETHOXAZOLE\TRIMETHOPRIM [Concomitant]
     Active Substance: SULFAMETHOXAZOLE\TRIMETHOPRIM
     Indication: Antifungal prophylaxis
     Dosage: UNK
     Route: 065
  9. VALACYCLOVIR HYDROCHLORIDE [Concomitant]
     Active Substance: VALACYCLOVIR HYDROCHLORIDE
     Indication: Infection prophylaxis
     Dosage: UNK
     Route: 065
  10. ONDANSETRON [Concomitant]
     Active Substance: ONDANSETRON
     Indication: Antiemetic supportive care
     Dosage: UNK
     Route: 065
  11. ALIZAPRIDE [Concomitant]
     Active Substance: ALIZAPRIDE
     Indication: Antiemetic supportive care
     Dosage: UNK
     Route: 065
  12. LANSOPRAZOLE [Concomitant]
     Active Substance: LANSOPRAZOLE
     Indication: Antiemetic supportive care
     Dosage: UNK
     Route: 065
  13. LANSOPRAZOLE [Concomitant]
     Active Substance: LANSOPRAZOLE
     Indication: Antacid therapy

REACTIONS (2)
  - Hyperbilirubinaemia [Recovered/Resolved]
  - Febrile bone marrow aplasia [Not Recovered/Not Resolved]

NARRATIVE: CASE EVENT DATE: 20180703
